FAERS Safety Report 7010604-8 (Version None)
Quarter: 2010Q3

REPORT INFORMATION
  Report Type: 
  Country: None (occurrence: None)
  Receive Date: 20100923
  Receipt Date: 20100910
  Transmission Date: 20110219
  Serious: Yes (Hospitalization)
  Sender: FDA-Public Use
  Company Number: JP-ABBOTT-10P-087-0672245-00

PATIENT
  Age: 59 Year
  Sex: Male

DRUGS (4)
  1. LEUPROLIDE ACETATE [Suspect]
     Indication: PROSTATE CANCER STAGE IV
     Route: 058
     Dates: start: 20080321, end: 20090311
  2. LEUPROLIDE ACETATE [Suspect]
     Route: 058
     Dates: start: 20090909
  3. FLUTAMIDE [Concomitant]
     Indication: PROSTATE CANCER STAGE IV
     Route: 048
     Dates: start: 20090909, end: 20091202
  4. DOCETAXEL [Concomitant]
     Indication: PROSTATE CANCER STAGE IV
     Route: 042
     Dates: start: 20091209, end: 20100331

REACTIONS (1)
  - FEMUR FRACTURE [None]
